FAERS Safety Report 15968028 (Version 2)
Quarter: 2019Q2

REPORT INFORMATION
  Report Type: Spontaneous
  Country: KW (occurrence: KW)
  Receive Date: 20190215
  Receipt Date: 20190424
  Transmission Date: 20190711
  Serious: Yes (Other)
  Sender: FDA-Public Use
  Company Number: KW-JNJFOC-20190204242

PATIENT
  Age: 51 Year
  Sex: Female

DRUGS (2)
  1. STELARA [Suspect]
     Active Substance: USTEKINUMAB
     Indication: CROHN^S DISEASE
     Route: 042
     Dates: start: 20181226
  2. STELARA [Suspect]
     Active Substance: USTEKINUMAB
     Indication: CROHN^S DISEASE
     Route: 042
     Dates: start: 20181104

REACTIONS (7)
  - Defaecation urgency [Unknown]
  - Decreased appetite [Unknown]
  - Constipation [Unknown]
  - Gastrointestinal pain [Unknown]
  - Alopecia [Unknown]
  - Haematochezia [Unknown]
  - Infection [Unknown]
